FAERS Safety Report 5234039-3 (Version None)
Quarter: 2007Q1

REPORT INFORMATION
  Report Type: 
  Country: None (occurrence: None)
  Receive Date: 20070208
  Receipt Date: 20070205
  Transmission Date: 20070707
  Serious: Yes (Life-Threatening)
  Sender: FDA-Public Use
  Company Number: US-BOEHRINGER INGELHEIM PHARMACEUTICALS, INC.-2007-DE-00693GD

PATIENT
  Age: 5 Year
  Sex: Female
  Weight: 16.8 kg

DRUGS (5)
  1. CLONIDINE [Suspect]
     Indication: AGITATION
     Dosage: 3 DOSES OF 0.1 MG: AT 19:00, 23:00 AND 04:00 HOURS
  2. CLONIDINE [Suspect]
     Indication: ANXIETY
  3. SEVOFLURANE [Suspect]
     Indication: ANAESTHESIA
     Dosage: TITRATED TO 8 %
     Route: 055
  4. NITROUS OXIDE W/ OXYGEN [Suspect]
     Indication: ANAESTHESIA
     Route: 055
  5. OXYGEN [Concomitant]
     Indication: ANAESTHESIA
     Route: 055

REACTIONS (6)
  - BRADYCARDIA [None]
  - CARDIAC ARREST [None]
  - HYPOTENSION [None]
  - MEDICATION ERROR [None]
  - SPUTUM DISCOLOURED [None]
  - VENTRICULAR DYSFUNCTION [None]
